FAERS Safety Report 10077833 (Version 2)
Quarter: 2014Q2

REPORT INFORMATION
  Report Type: Report from Study
  Country: US (occurrence: US)
  Receive Date: 20140414
  Receipt Date: 20140508
  Transmission Date: 20141212
  Serious: Yes (Death, Other)
  Sender: FDA-Public Use
  Company Number: US-GILEAD-2014-0099442

PATIENT
  Sex: Female

DRUGS (31)
  1. AZTREONAM LYSINE [Suspect]
     Indication: PSEUDOMONAS INFECTION
     Dosage: 75 MG, TID
     Route: 055
     Dates: start: 20100527
  2. ALBUTEROL                          /00139501/ [Concomitant]
     Dosage: 2 PUFFS (DF), TID (PRN)
     Route: 055
  3. FOSAMAX [Concomitant]
     Dosage: 70 MG, ON MONDAY (Q1WK)
     Route: 048
  4. ZITHROMAX [Concomitant]
     Dosage: 500 MG, ON MTF
     Route: 048
     Dates: start: 20130816
  5. CALCIUM CARBONATE W/COLECALCIFEROL/MINERALS N [Concomitant]
     Dosage: 1 TABLET (DF), QD
     Route: 048
  6. CHOLECALCIFEROL [Concomitant]
     Dosage: 50000 IU, EVERY 14 DAYS
     Route: 048
  7. CELEXA                             /00582602/ [Concomitant]
     Dosage: 10 MG, QD
     Route: 048
     Dates: start: 20131108
  8. NUTRIENTS NOS [Concomitant]
     Indication: NUTRITIONAL SUPPLEMENTATION
     Dosage: 1 PACKET (DF), EVERY MORNING (QD)
     Route: 048
  9. PULMOZYME [Concomitant]
     Dosage: 2.5 MG, QD
     Route: 055
     Dates: start: 20130724
  10. MARINOL                            /00003301/ [Concomitant]
     Dosage: 2.5 MG, BID
     Route: 048
     Dates: start: 20131029
  11. FERROUS SULFATE [Concomitant]
     Dosage: 325 MG, WITH MEALS TID
     Route: 048
  12. NOVOLOG [Concomitant]
     Dosage: SLIDING SCALE
     Route: 058
     Dates: start: 20130930
  13. INSULIN ASPART [Concomitant]
     Dosage: 1 UNIT (DF), QD
     Route: 058
  14. LANTUS [Concomitant]
     Dosage: 18 UNITS (DF), QD
     Route: 058
     Dates: start: 20130930
  15. HUMULIN N [Concomitant]
     Dosage: 25 UNITS (DF), QD
     Route: 058
     Dates: start: 20130930
  16. NOVOLIN R [Concomitant]
     Dosage: 6 UNITS (DF), QD BEFORE TUBE FEEDINGS
     Route: 058
  17. AQUADEKS                           /07679501/ [Concomitant]
     Dosage: 1 CAPSULE (DF), BID
     Route: 048
  18. HEPATITIS VACCINES [Concomitant]
     Dosage: 2 CANS (DF), QD VIA TF OVER 5 HRS
  19. PRILOSEC                           /00661201/ [Concomitant]
     Dosage: 20 MG, QD
     Route: 048
  20. OXYGEN [Concomitant]
     Dosage: 4 LITERS (DF), CONTINUOUSLY
     Route: 045
  21. ZENPEP [Concomitant]
     Dosage: 20000 UNITS (DF), Q4HR
     Route: 048
  22. INDERAL [Concomitant]
     Dosage: 20 MG, BID
     Route: 048
     Dates: start: 20130815
  23. SODIUM CHLORIDE [Concomitant]
     Dosage: 4 ML, BID
     Route: 055
  24. TOBI PODHALER [Concomitant]
     Dosage: 4 CAPSULE (DF), EVERY 12 HOURS
     Route: 055
  25. ACTIGALL [Concomitant]
     Dosage: 300 MG, BID
     Route: 048
  26. VFEND [Concomitant]
     Dosage: 200 MG, EVERY 12 HOURS
     Dates: start: 20131114
  27. TYLENOL                            /00020001/ [Concomitant]
     Dosage: 650 MG, PRN
     Route: 048
     Dates: start: 20140219
  28. PLASBUMIN [Concomitant]
     Dosage: 5000 ML, PRN
     Route: 042
     Dates: start: 20140219
  29. CALCIUM GLUCONATE [Concomitant]
     Dosage: 4 G, PRN
     Route: 042
     Dates: start: 20140219
  30. BENADRYL                           /00000402/ [Concomitant]
     Dosage: 25 MG, PRN
     Route: 042
     Dates: start: 20140219
  31. HEPARIN FLUSH [Concomitant]
     Dosage: 2000 UNITS (DF), PRN
     Dates: start: 20140219

REACTIONS (3)
  - Systemic mycosis [Fatal]
  - Immunosuppression [Fatal]
  - Lung transplant [Fatal]
